FAERS Safety Report 7912088-1 (Version None)
Quarter: 2011Q4

REPORT INFORMATION
  Report Type: 
  Country: None (occurrence: None)
  Receive Date: 20111114
  Receipt Date: 20111113
  Transmission Date: 20120403
  Serious: Yes (Death, Other)
  Sender: FDA-Public Use
  Company Number: EG-ROCHE-1012524

PATIENT
  Age: 48 Year
  Sex: Male

DRUGS (3)
  1. VINCRISTINE [Concomitant]
     Indication: NON-HODGKIN'S LYMPHOMA
     Route: 041
  2. CYCLOPHOSPHAMIDE [Concomitant]
     Indication: NON-HODGKIN'S LYMPHOMA
     Route: 041
  3. MABTHERA [Suspect]
     Indication: NON-HODGKIN'S LYMPHOMA
     Route: 041

REACTIONS (4)
  - PAIN IN EXTREMITY [None]
  - HEPATORENAL FAILURE [None]
  - EMBOLISM [None]
  - OEDEMA PERIPHERAL [None]
